FAERS Safety Report 6384223-0 (Version None)
Quarter: 2009Q4

REPORT INFORMATION
  Report Type: 
  Country: None (occurrence: None)
  Receive Date: 20091001
  Receipt Date: 20090921
  Transmission Date: 20100525
  Serious: Yes (Hospitalization)
  Sender: FDA-Public Use
  Company Number: B0594820A

PATIENT
  Sex: Female
  Weight: 58 kg

DRUGS (5)
  1. LAPATINIB [Suspect]
     Dosage: 1250MG PER DAY
     Route: 048
     Dates: start: 20090811
  2. TAXOTERE [Suspect]
     Dosage: 116MG PER DAY
     Route: 042
     Dates: start: 20090811, end: 20090811
  3. NEURONTIN [Concomitant]
     Indication: BONE PAIN
     Dates: start: 20090818, end: 20090820
  4. EFFERALGAN CODEINE [Concomitant]
     Indication: BONE PAIN
     Route: 048
     Dates: start: 20090101
  5. XYZAL [Concomitant]
     Indication: RASH
     Route: 061
     Dates: start: 20090801, end: 20090822

REACTIONS (2)
  - MONOCYTE COUNT DECREASED [None]
  - NEUTROPENIA [None]
